FAERS Safety Report 16988949 (Version 1)
Quarter: 2019Q4

REPORT INFORMATION
  Report Type: Spontaneous
  Country: US (occurrence: US)
  Receive Date: 20190919
  Receipt Date: 20190919
  Transmission Date: 20200122
  Serious: Yes (Disabling)
  Sender: FDA-Public Use
  Company Number: None

PATIENT
  Age: 70 Year
  Sex: Female
  Weight: 65.77 kg

DRUGS (13)
  1. COSAMIN D [Concomitant]
  2. CALCIUM CITRATE [Concomitant]
     Active Substance: CALCIUM CITRATE
  3. ATENOLOL. [Concomitant]
     Active Substance: ATENOLOL
  4. FISH OIL [Concomitant]
     Active Substance: FISH OIL
  5. ROCKLATAN [Suspect]
     Active Substance: LATANOPROST\NETARSUDIL MESYLATE
     Indication: GLAUCOMA
     Dosage: ?          QUANTITY:2.5 MG/ML - MILLLIGRAMS PER MILLILITRES;?
     Route: 047
     Dates: start: 20190522, end: 20190814
  6. LEVOTHYROXIN [Concomitant]
     Active Substance: LEVOTHYROXINE
  7. DIGESTZYME-V [Concomitant]
  8. VITAMIN D [Concomitant]
     Active Substance: VITAMIN D NOS
  9. ESTRIOL/ESTRADIOL [Concomitant]
  10. PROGESTERONE. [Concomitant]
     Active Substance: PROGESTERONE
  11. DHEA [Concomitant]
     Active Substance: PRASTERONE
  12. PHYTOMULTI [Concomitant]
  13. BRILLIANT VISION [Concomitant]

REACTIONS (5)
  - Instillation site pruritus [None]
  - Unevaluable event [None]
  - Instillation site discharge [None]
  - Periorbital oedema [None]
  - Instillation site erythema [None]

NARRATIVE: CASE EVENT DATE: 20190801
